FAERS Safety Report 4955335-0 (Version None)
Quarter: 2006Q1

REPORT INFORMATION
  Report Type: 
  Country: None (occurrence: None)
  Receive Date: 20060328
  Receipt Date: 20050101
  Transmission Date: 20060701
  Serious: Yes (Other)
  Sender: FDA-Public Use
  Company Number: DE-BRISTOL-MYERS SQUIBB COMPANY-13299110

PATIENT
  Age: 40 Year
  Sex: Male
  Weight: 82 kg

DRUGS (15)
  1. ZERIT [Suspect]
     Indication: HIV INFECTION
     Dates: start: 19960801, end: 19991201
  2. VIDEX [Suspect]
     Indication: HIV INFECTION
     Dates: start: 19961101, end: 20011201
  3. SUSTIVA [Suspect]
     Indication: HIV INFECTION
     Dates: start: 19980701, end: 19991201
  4. REYATAZ [Suspect]
     Indication: HIV INFECTION
     Dates: start: 20040301, end: 20041201
  5. LITALIR [Suspect]
     Indication: HIV INFECTION
     Dates: start: 19980701, end: 20000801
  6. RITONAVIR [Concomitant]
     Indication: HIV INFECTION
     Dates: start: 19971001, end: 20041201
  7. ZIDOVUDINE [Concomitant]
     Indication: HIV INFECTION
     Dates: start: 19930301, end: 20011201
  8. ZALCITABINE [Concomitant]
     Indication: HIV INFECTION
     Dates: start: 19930301, end: 19970601
  9. LAMIVUDINE [Concomitant]
     Indication: HIV INFECTION
     Dates: start: 19960401, end: 20011201
  10. INDINIVIR SULFATE [Concomitant]
     Indication: HIV INFECTION
     Dates: start: 19960801, end: 20040301
  11. SAQUINAVIR [Concomitant]
     Indication: HIV INFECTION
     Dates: start: 19950601, end: 20041201
  12. NEVIRAPINE [Concomitant]
     Indication: HIV INFECTION
     Dates: start: 19961101, end: 20011201
  13. NELFINAVIR [Concomitant]
     Indication: HIV INFECTION
     Dates: start: 19970501, end: 19991201
  14. ABACAVIR [Concomitant]
     Indication: HIV INFECTION
     Dates: start: 19971101, end: 20011201
  15. LOPINAVIR [Concomitant]
     Indication: HIV INFECTION
     Dates: start: 20020301, end: 20040301

REACTIONS (11)
  - BRONCHITIS [None]
  - DIARRHOEA [None]
  - DRUG INTERACTION [None]
  - DRUG RESISTANCE [None]
  - DRY SKIN [None]
  - ECZEMA [None]
  - HERPES ZOSTER [None]
  - LIPODYSTROPHY ACQUIRED [None]
  - OESOPHAGEAL CANDIDIASIS [None]
  - POLYNEUROPATHY [None]
  - REFLUX OESOPHAGITIS [None]
